FAERS Safety Report 8398194-9 (Version None)
Quarter: 2012Q2

REPORT INFORMATION
  Report Type: 
  Country: None (occurrence: None)
  Receive Date: 20120531
  Receipt Date: 20120522
  Transmission Date: 20120825
  Serious: Yes (Other)
  Sender: FDA-Public Use
  Company Number: US-NOVOPROD-343805

PATIENT
  Age: 61 Year
  Sex: Male
  Weight: 107.94 kg

DRUGS (5)
  1. FORTAMET [Concomitant]
     Indication: TYPE 2 DIABETES MELLITUS
  2. BENICAR [Concomitant]
     Indication: HYPERTENSION
     Dosage: UNK
     Dates: start: 20060101, end: 20111201
  3. VICTOZA [Suspect]
     Indication: TYPE 2 DIABETES MELLITUS
     Dosage: 1.4 MG, QD
     Route: 058
     Dates: start: 20100401
  4. LIPITOR [Concomitant]
     Indication: BLOOD CHOLESTEROL INCREASED
  5. LOSARTAN POTASSIUM [Concomitant]
     Indication: HYPERTENSION
     Dosage: UNK
     Dates: start: 20111201

REACTIONS (2)
  - THYROID NEOPLASM [None]
  - PARATHYROID TUMOUR [None]
